FAERS Safety Report 12278885 (Version 7)
Quarter: 2019Q4

REPORT INFORMATION
  Report Type: Report from Study
  Country: US (occurrence: US)
  Receive Date: 20160418
  Receipt Date: 20191223
  Transmission Date: 20200122
  Serious: Yes (Other)
  Sender: FDA-Public Use
  Company Number: PHHY2015US123722

PATIENT
  Age: 32 Year
  Sex: Male

DRUGS (1)
  1. GILENYA [Suspect]
     Active Substance: FINGOLIMOD HYDROCHLORIDE
     Indication: MULTIPLE SCLEROSIS
     Dosage: UNK, QD
     Route: 048

REACTIONS (21)
  - Tinea pedis [Unknown]
  - Vision blurred [Not Recovered/Not Resolved]
  - Alanine aminotransferase increased [Not Recovered/Not Resolved]
  - Presyncope [Recovered/Resolved]
  - Seborrhoeic keratosis [Not Recovered/Not Resolved]
  - Dizziness [Not Recovered/Not Resolved]
  - Blood bilirubin increased [Not Recovered/Not Resolved]
  - Neutrophil count decreased [Not Recovered/Not Resolved]
  - White blood cell count decreased [Not Recovered/Not Resolved]
  - Feeling abnormal [Recovered/Resolved]
  - Melanocytic naevus [Not Recovered/Not Resolved]
  - Haemangioma of skin [Not Recovered/Not Resolved]
  - Fibrous histiocytoma [Not Recovered/Not Resolved]
  - Blood urea increased [Not Recovered/Not Resolved]
  - Lymphocyte count decreased [Not Recovered/Not Resolved]
  - Hepatic enzyme increased [Not Recovered/Not Resolved]
  - Dizziness [Recovered/Resolved]
  - Bilirubin conjugated increased [Not Recovered/Not Resolved]
  - Platelet count decreased [Not Recovered/Not Resolved]
  - Palpitations [Recovered/Resolved]
  - Dehydration [Recovered/Resolved]

NARRATIVE: CASE EVENT DATE: 20150619
